FAERS Safety Report 6675697-6 (Version None)
Quarter: 2010Q2

REPORT INFORMATION
  Report Type: 
  Country: None (occurrence: None)
  Receive Date: 20100409
  Receipt Date: 20100331
  Transmission Date: 20101027
  Serious: Yes (Life-Threatening, Hospitalization, Other)
  Sender: FDA-Public Use
  Company Number: PE-ABBOTT-10P-127-0635770-00

PATIENT
  Sex: Male
  Weight: 47 kg

DRUGS (1)
  1. ZEMPLAR [Suspect]
     Indication: HYPERPARATHYROIDISM SECONDARY
     Route: 042
     Dates: start: 20091203, end: 20100109

REACTIONS (1)
  - CELLULITIS [None]
